FAERS Safety Report 7803502-0 (Version None)
Quarter: 2011Q4

REPORT INFORMATION
  Report Type: 
  Country: None (occurrence: None)
  Receive Date: 20111007
  Receipt Date: 20110928
  Transmission Date: 20120403
  Serious: Yes (Hospitalization)
  Sender: FDA-Public Use
  Company Number: US-ASTRAZENECA-2011SE55875

PATIENT
  Age: 61 Year
  Sex: Male

DRUGS (1)
  1. NEXIUM [Suspect]
     Route: 048

REACTIONS (6)
  - PANCREATITIS [None]
  - DRUG DOSE OMISSION [None]
  - GASTROINTESTINAL INFLAMMATION [None]
  - DUODENAL ULCER [None]
  - GASTROINTESTINAL ULCER HAEMORRHAGE [None]
  - DIVERTICULITIS [None]
